FAERS Safety Report 4519834-8 (Version None)
Quarter: 2004Q4

REPORT INFORMATION
  Report Type: 
  Country: None (occurrence: None)
  Receive Date: 20041207
  Receipt Date: 20041201
  Transmission Date: 20050328
  Serious: Yes (Other)
  Sender: FDA-Public Use
  Company Number: PHBS2004JP16071

PATIENT
  Age: 30 Year
  Sex: Female

DRUGS (6)
  1. CYCLOSPORINE [Suspect]
     Indication: SYSTEMIC LUPUS ERYTHEMATOSUS
     Route: 065
  2. AZATHIOPRINE [Concomitant]
  3. ADRENOCORTICOTROPHIC HORMONE [Concomitant]
  4. CYCLOPHOSPHAMIDE [Concomitant]
  5. ERYTHROMYCIN [Concomitant]
  6. SANDOSTATIN [Suspect]
     Indication: ABDOMINAL PAIN

REACTIONS (3)
  - ANOREXIA [None]
  - PNEUMOCYSTIS CARINII PNEUMONIA [None]
  - SEPSIS [None]
